FAERS Safety Report 4897832-2 (Version None)
Quarter: 2006Q1

REPORT INFORMATION
  Report Type: 
  Country: None (occurrence: None)
  Receive Date: 20060201
  Receipt Date: 20060127
  Transmission Date: 20060701
  Serious: Yes (Hospitalization, Other)
  Sender: FDA-Public Use
  Company Number: US-GLAXOSMITHKLINE-A0591199A

PATIENT
  Age: 13 Year
  Sex: Male

DRUGS (1)
  1. TUMS E-X TABLETS, TROPICAL FRUIT [Suspect]
     Route: 048
     Dates: start: 20060121, end: 20060121

REACTIONS (5)
  - HYPERSENSITIVITY [None]
  - SWELLING FACE [None]
  - SWOLLEN TONGUE [None]
  - THROAT TIGHTNESS [None]
  - URTICARIA [None]
